FAERS Safety Report 5209572-0 (Version None)
Quarter: 2007Q1

REPORT INFORMATION
  Report Type: 
  Country: None (occurrence: None)
  Receive Date: 20070116
  Receipt Date: 20070105
  Transmission Date: 20070707
  Serious: Yes (Other)
  Sender: FDA-Public Use
  Company Number: CA-PFIZER INC-2007002192

PATIENT
  Age: 3 Year
  Sex: Female

DRUGS (1)
  1. ZITHROMAX [Suspect]
     Indication: EAR PAIN

REACTIONS (1)
  - RECTAL HAEMORRHAGE [None]
